FAERS Safety Report 16772080 (Version 1)
Quarter: 2019Q3

REPORT INFORMATION
  Report Type: Spontaneous
  Country: IN (occurrence: IN)
  Receive Date: 20190904
  Receipt Date: 20190904
  Transmission Date: 20191005
  Serious: Yes (Other)
  Sender: FDA-Public Use
  Company Number: IN-PFIZER INC-2019212300

PATIENT
  Age: 56 Year
  Sex: Female
  Weight: 59.8 kg

DRUGS (5)
  1. HUMULIN NOS [Concomitant]
     Active Substance: INSULIN HUMAN
     Dosage: UNK
  2. OROFER DAILY [Concomitant]
     Dosage: UNK
  3. SHELCOL [Concomitant]
     Dosage: UNK
  4. GLYCINE. [Concomitant]
     Active Substance: GLYCINE
     Dosage: UNK
  5. AROMASIN [Suspect]
     Active Substance: EXEMESTANE
     Indication: BREAST CANCER METASTATIC
     Dosage: 25 MG, UNK
     Route: 048
     Dates: start: 20190504

REACTIONS (5)
  - Second primary malignancy [Not Recovered/Not Resolved]
  - Asthenia [Unknown]
  - Brain neoplasm [Not Recovered/Not Resolved]
  - Neoplasm progression [Unknown]
  - Nausea [Unknown]
